FAERS Safety Report 19355889 (Version 2)
Quarter: 2021Q2

REPORT INFORMATION
  Report Type: Report from Study
  Country: KR (occurrence: KR)
  Receive Date: 20210602
  Receipt Date: 20210605
  Transmission Date: 20210717
  Serious: Yes (Other)
  Sender: FDA-Public Use
  Company Number: KR-AMGEN INC.-KORCT2021083663

PATIENT
  Age: 54 Year
  Sex: Male

DRUGS (54)
  1. ALBUMIN [Concomitant]
     Active Substance: ALBUMIN HUMAN
     Indication: PRODUCT USED FOR UNKNOWN INDICATION
     Dosage: 1 UNK, QD
     Dates: start: 20170622, end: 20170622
  2. CHLORPHENAMINE [Concomitant]
     Active Substance: CHLORPHENIRAMINE MALEATE
     Indication: PRODUCT USED FOR UNKNOWN INDICATION
     Dosage: 4 MILLIGRAM, QD
     Dates: end: 20170320
  3. CHLORPHENAMINE [Concomitant]
     Active Substance: CHLORPHENIRAMINE MALEATE
     Dosage: 4 MILLIGRAM, QD
     Dates: end: 20170411
  4. CHLORPHENAMINE [Concomitant]
     Active Substance: CHLORPHENIRAMINE MALEATE
     Dosage: 4 MILLIGRAM, QD
     Dates: end: 20170518
  5. FUROSEMIDE. [Concomitant]
     Active Substance: FUROSEMIDE
     Indication: PRODUCT USED FOR UNKNOWN INDICATION
     Dosage: UNK
     Dates: start: 20170408, end: 20170413
  6. PACLITAXEL. [Concomitant]
     Active Substance: PACLITAXEL
     Dosage: 65 UNK, QD
     Dates: end: 20170411
  7. PROPACETAMOL [Concomitant]
     Active Substance: PROPACETAMOL
     Indication: PRODUCT USED FOR UNKNOWN INDICATION
     Dosage: 1 UNK
     Dates: start: 20170331, end: 20170402
  8. RAMUCIRUMAB [Concomitant]
     Active Substance: RAMUCIRUMAB
     Dosage: UNK UNK, QD
     Dates: start: 20110607
  9. CHLORPHENAMINE [Concomitant]
     Active Substance: CHLORPHENIRAMINE MALEATE
     Dosage: 4 MILLIGRAM, QD
     Dates: end: 20170427
  10. DEXAMETHASONE. [Concomitant]
     Active Substance: DEXAMETHASONE
     Dosage: 10 MILLIGRAM, QD
     Dates: end: 20170411
  11. FAMOTIDINE. [Concomitant]
     Active Substance: FAMOTIDINE
     Indication: PRODUCT USED FOR UNKNOWN INDICATION
     Dosage: 1 UNK, QD
     Dates: start: 20170411
  12. FAMOTIDINE. [Concomitant]
     Active Substance: FAMOTIDINE
     Dosage: 2 UNK, QD
     Dates: start: 20170413
  13. FAMOTIDINE. [Concomitant]
     Active Substance: FAMOTIDINE
     Dosage: 20 MILLIGRAM, QD
     Dates: start: 20170320, end: 20170320
  14. METOCLOPRAMIDE. [Concomitant]
     Active Substance: METOCLOPRAMIDE
     Indication: PRODUCT USED FOR UNKNOWN INDICATION
     Dosage: 1DF UNK
     Dates: start: 20170427, end: 20170427
  15. PACLITAXEL. [Concomitant]
     Active Substance: PACLITAXEL
     Dosage: 80 UNK, QD
     Dates: end: 20170320
  16. PIPERACILLIN AND TAZOBACTAM [Concomitant]
     Active Substance: PIPERACILLIN SODIUM\TAZOBACTAM SODIUM
     Indication: PRODUCT USED FOR UNKNOWN INDICATION
     Dosage: 4 UNK, QD
     Dates: start: 20170331, end: 20170407
  17. URSODEOXYCHOLIC ACID [Concomitant]
     Active Substance: URSODIOL
     Indication: PRODUCT USED FOR UNKNOWN INDICATION
     Dosage: 1 DF, QD
     Dates: start: 20170223, end: 20170330
  18. ACECLOFENAC [Concomitant]
     Active Substance: ACECLOFENAC
     Indication: PRODUCT USED FOR UNKNOWN INDICATION
     Dosage: 2 DF, QD
     Dates: start: 20170320, end: 20170324
  19. ACECLOFENAC [Concomitant]
     Active Substance: ACECLOFENAC
     Dosage: 2 DF, QD
     Dates: start: 20170413, end: 20170427
  20. CARBAMIDE [Concomitant]
     Active Substance: UREA
     Indication: PRODUCT USED FOR UNKNOWN INDICATION
     Dosage: 50 UNK
     Dates: start: 20170413
  21. METOCLOPRAMIDE. [Concomitant]
     Active Substance: METOCLOPRAMIDE
     Dosage: 1DF UNK
     Dates: start: 20170518, end: 20170518
  22. PACLITAXEL. [Concomitant]
     Active Substance: PACLITAXEL
     Indication: PRODUCT USED FOR UNKNOWN INDICATION
     Dosage: 50 UNK, QD
     Dates: end: 20170427
  23. PACLITAXEL. [Concomitant]
     Active Substance: PACLITAXEL
     Dosage: 50 UNK, QD
     Dates: end: 20170518
  24. FILGRASTIM [Suspect]
     Active Substance: FILGRASTIM
     Indication: PRODUCT USED FOR UNKNOWN INDICATION
     Dosage: 1 UNK, QD
     Route: 065
     Dates: start: 20170331, end: 20170403
  25. RAMUCIRUMAB [Concomitant]
     Active Substance: RAMUCIRUMAB
     Dosage: UNK UNK, QD
     Dates: start: 20170427
  26. RAMUCIRUMAB [Concomitant]
     Active Substance: RAMUCIRUMAB
     Dosage: UNK UNK, QD
     Dates: start: 20110706
  27. DEXAMETHASONE. [Concomitant]
     Active Substance: DEXAMETHASONE
     Dosage: 10 MILLIGRAM, QD
     Dates: end: 20170427
  28. DEXAMETHASONE. [Concomitant]
     Active Substance: DEXAMETHASONE
     Dosage: 10 MILLIGRAM, QD
     Dates: end: 20170518
  29. FAMOTIDINE. [Concomitant]
     Active Substance: FAMOTIDINE
     Dosage: 20 MILLIGRAM, QD
     Dates: start: 20170427, end: 20170427
  30. FAMOTIDINE. [Concomitant]
     Active Substance: FAMOTIDINE
     Dosage: 20 MILLIGRAM, QD
     Dates: start: 20170518, end: 20170518
  31. POTASSIUM CHLORIDE. [Concomitant]
     Active Substance: POTASSIUM CHLORIDE
     Indication: PRODUCT USED FOR UNKNOWN INDICATION
     Dosage: 3 DF, QD
     Dates: start: 20170407, end: 20170407
  32. ACECLOFENAC [Concomitant]
     Active Substance: ACECLOFENAC
     Dosage: 2 DF, QD
     Dates: start: 20170519, end: 20170602
  33. ALBUMIN [Concomitant]
     Active Substance: ALBUMIN HUMAN
     Dosage: 1 UNK, QD
     Dates: start: 20170705, end: 20170705
  34. ALBUMIN [Concomitant]
     Active Substance: ALBUMIN HUMAN
     Dosage: 1 UNK, QD
     Dates: start: 20170331, end: 20170331
  35. CHLORPHENAMINE [Concomitant]
     Active Substance: CHLORPHENIRAMINE MALEATE
     Dosage: 4 MILLIGRAM, QD
     Dates: end: 20170607
  36. FUROSEMIDE. [Concomitant]
     Active Substance: FUROSEMIDE
     Dosage: 1 DF
     Dates: start: 20170406, end: 20170411
  37. RAMUCIRUMAB [Concomitant]
     Active Substance: RAMUCIRUMAB
     Indication: PRODUCT USED FOR UNKNOWN INDICATION
     Dosage: UNK UNK, QD
     Dates: start: 20170320
  38. ALBUMIN [Concomitant]
     Active Substance: ALBUMIN HUMAN
     Dosage: 1 UNK, QD
     Dates: start: 20170413, end: 20170413
  39. CEFTRIAXONE. [Concomitant]
     Active Substance: CEFTRIAXONE
     Indication: PRODUCT USED FOR UNKNOWN INDICATION
     Dosage: 2 UNK, QD
     Dates: start: 20170331, end: 20170331
  40. METOCLOPRAMIDE. [Concomitant]
     Active Substance: METOCLOPRAMIDE
     Dosage: 3 DF UNK
     Dates: start: 20170320, end: 20170320
  41. PACLITAXEL. [Concomitant]
     Active Substance: PACLITAXEL
     Dosage: 50 UNK, QD
     Dates: end: 20170504
  42. RAMUCIRUMAB [Concomitant]
     Active Substance: RAMUCIRUMAB
     Dosage: UNK UNK, QD
     Dates: start: 20170411
  43. RAMUCIRUMAB [Concomitant]
     Active Substance: RAMUCIRUMAB
     Dosage: UNK UNK, QD
     Dates: start: 20110621
  44. ALBUMIN [Concomitant]
     Active Substance: ALBUMIN HUMAN
     Dosage: 1 UNK, QD
     Dates: start: 20170710, end: 20170710
  45. CHLORPHENAMINE [Concomitant]
     Active Substance: CHLORPHENIRAMINE MALEATE
     Dosage: 4 MILLIGRAM, QD
     Dates: end: 20170706
  46. DEXAMETHASONE. [Concomitant]
     Active Substance: DEXAMETHASONE
     Indication: PRODUCT USED FOR UNKNOWN INDICATION
     Dosage: 10 MILLIGRAM, QD
     Dates: end: 20170320
  47. FAMOTIDINE. [Concomitant]
     Active Substance: FAMOTIDINE
     Dosage: 1 UNK, QD
     Dates: start: 20170324
  48. FUROSEMIDE. [Concomitant]
     Active Substance: FUROSEMIDE
     Dosage: 40 MILLIGRAM, QD
     Dates: start: 20170413, end: 20170419
  49. PACLITAXEL. [Concomitant]
     Active Substance: PACLITAXEL
     Dosage: 80 UNK, QD
     Dates: end: 20170327
  50. URSODEOXYCHOLIC ACID [Concomitant]
     Active Substance: URSODIOL
     Dosage: 1 DF, QD
     Dates: start: 20170411
  51. CHLORPHENAMINE [Concomitant]
     Active Substance: CHLORPHENIRAMINE MALEATE
     Dosage: 4 MILLIGRAM, QD
     Dates: end: 20170621
  52. POTASSIUM CHLORIDE. [Concomitant]
     Active Substance: POTASSIUM CHLORIDE
     Dosage: 10 UNK, QD
     Dates: start: 20170407, end: 20170407
  53. SILYMARIN 100 [Concomitant]
     Indication: PRODUCT USED FOR UNKNOWN INDICATION
     Dosage: 2 UNK, QD
     Dates: start: 20170705
  54. SODIUM CHLORIDE. [Concomitant]
     Active Substance: SODIUM CHLORIDE
     Indication: PRODUCT USED FOR UNKNOWN INDICATION
     Dosage: 1000 UNK
     Dates: start: 20170331, end: 20170405

REACTIONS (15)
  - Asthenia [Not Recovered/Not Resolved]
  - Alanine aminotransferase increased [Recovered/Resolved]
  - Neutrophil count decreased [Recovered/Resolved]
  - Insomnia [Recovered/Resolved]
  - Oedema peripheral [Recovered/Resolved]
  - Blood bilirubin increased [Not Recovered/Not Resolved]
  - Hypoalbuminaemia [Recovered/Resolved]
  - Neuropathy peripheral [Not Recovered/Not Resolved]
  - Decreased appetite [Recovered/Resolved]
  - Hypokalaemia [Recovered/Resolved]
  - Hypophosphataemia [Recovered/Resolved]
  - Platelet count decreased [Not Recovered/Not Resolved]
  - Aspartate aminotransferase increased [Recovering/Resolving]
  - Abdominal pain [Recovered/Resolved]
  - Diarrhoea [Recovered/Resolved]

NARRATIVE: CASE EVENT DATE: 20170331
